FAERS Safety Report 7413067-3 (Version None)
Quarter: 2011Q2

REPORT INFORMATION
  Report Type: 
  Country: None (occurrence: None)
  Receive Date: 20110405
  Receipt Date: 20110317
  Transmission Date: 20111010
  Serious: Yes (Death, Hospitalization)
  Sender: FDA-Public Use
  Company Number: 2011P1005166

PATIENT
  Age: 21 Year
  Sex: Male

DRUGS (3)
  1. CARISOPRODOL [Suspect]
     Dosage: PO
     Route: 048
  2. OXYCONTIN [Suspect]
     Dosage: PO
     Route: 048
  3. ALPRAZOLAM [Suspect]
     Dosage: PO
     Route: 048

REACTIONS (6)
  - LETHARGY [None]
  - ASPIRATION [None]
  - MIOSIS [None]
  - RESPIRATORY ARREST [None]
  - TOXICITY TO VARIOUS AGENTS [None]
  - COMPLETED SUICIDE [None]
